FAERS Safety Report 6198051-2 (Version None)
Quarter: 2009Q2

REPORT INFORMATION
  Report Type: 
  Country: None (occurrence: None)
  Receive Date: 20090514
  Receipt Date: 20090414
  Transmission Date: 20091009
  Serious: Yes (Hospitalization, Disabling)
  Sender: FDA-Public Use
  Company Number: 191531USA

PATIENT
  Age: 45 Year
  Sex: Female

DRUGS (1)
  1. SEASONIQUE [Suspect]
     Indication: HAEMORRHAGE
     Dosage: ORAL
     Route: 048

REACTIONS (1)
  - CEREBROVASCULAR ACCIDENT [None]
